FAERS Safety Report 9543889 (Version 1)
Quarter: 2013Q2

REPORT INFORMATION
  Report Type: Spontaneous
  Country: US (occurrence: None)
  Receive Date: 20130524
  Receipt Date: 20130524
  Transmission Date: 20140414
  Serious: Yes (Other)
  Sender: FDA-Public Use
  Company Number: PHEH2013US004747

PATIENT
  Age: 40 Year
  Sex: Female
  Weight: 88 kg

DRUGS (13)
  1. GILENYA (FINGOLIMOD) CAPSULE, 0.5MG [Suspect]
     Indication: MULTIPLE SCLEROSIS
     Route: 048
     Dates: start: 20130219
  2. LISINOPRIL [Concomitant]
  3. CITALOPRAM [Concomitant]
  4. PREVACID (LANSOPRAZOLE) [Concomitant]
  5. METFORMIN [Concomitant]
  6. NEURONTIN (GABAPENTIN) [Concomitant]
  7. VITAMIN C [Concomitant]
  8. IBUPROFEN [Concomitant]
  9. VITAMIN E (TOCOPHEROL) [Concomitant]
  10. VITAMIN A + D (ERGOCALCIFEROL, RETINOL) [Concomitant]
  11. ECHINACEA [Concomitant]
  12. ADRENAL (EPINEPHRINE) [Concomitant]
  13. METAMUCIL (PLANTAGO OVATA) [Concomitant]

REACTIONS (6)
  - Headache [None]
  - Abdominal pain [None]
  - Constipation [None]
  - Musculoskeletal discomfort [None]
  - Back disorder [None]
  - Hypertension [None]
